FAERS Safety Report 17397695 (Version 2)
Quarter: 2020Q1

REPORT INFORMATION
  Report Type: Spontaneous
  Country: AT (occurrence: AT)
  Receive Date: 20200210
  Receipt Date: 20200214
  Transmission Date: 20200409
  Serious: Yes (Death, Hospitalization)
  Sender: FDA-Public Use
  Company Number: AT-JNJFOC-20200200615

PATIENT
  Age: 41 Year
  Sex: Male

DRUGS (7)
  1. FINASTERID [Concomitant]
     Active Substance: FINASTERIDE
  2. AQUAPHORIL [Concomitant]
     Active Substance: XIPAMIDE
  3. PREGABALIN. [Concomitant]
     Active Substance: PREGABALIN
  4. RIVAROXABAN [Suspect]
     Active Substance: RIVAROXABAN
     Indication: ATRIAL FIBRILLATION
     Dosage: 15 MG, QD
     Route: 048
     Dates: start: 2015
  5. LASIX [Concomitant]
     Active Substance: FUROSEMIDE
  6. ALLOPURINOL. [Concomitant]
     Active Substance: ALLOPURINOL
  7. OCTAGAM IMMUNE GLOBULIN (HUMAN) [Concomitant]
     Active Substance: HUMAN IMMUNOGLOBULIN G

REACTIONS (5)
  - Cardiac failure [Fatal]
  - Multiple organ dysfunction syndrome [Fatal]
  - Atrial fibrillation [Fatal]
  - Acute kidney injury [Fatal]
  - Gastrointestinal haemorrhage [Fatal]

NARRATIVE: CASE EVENT DATE: 20200114
